FAERS Safety Report 9107791 (Version 3)
Quarter: 2014Q3

REPORT INFORMATION
  Report Type: Spontaneous
  Country: US (occurrence: US)
  Receive Date: 20130221
  Receipt Date: 20140827
  Transmission Date: 20150326
  Serious: Yes (Disabling)
  Sender: FDA-Public Use
  Company Number: US-BAYER-2013-019183

PATIENT
  Age: 42 Year
  Sex: Female
  Weight: 81.63 kg

DRUGS (2)
  1. BENICAR HCT [Concomitant]
     Active Substance: HYDROCHLOROTHIAZIDE\OLMESARTAN MEDOXOMIL
     Dosage: 20/12.5, 1 TABLET DAILY
  2. MIRENA [Suspect]
     Active Substance: LEVONORGESTREL
     Indication: CONTRACEPTION
     Dosage: 20 MCG/24HR, CONT
     Route: 015
     Dates: start: 2007, end: 20120202

REACTIONS (9)
  - Deformity [None]
  - Embedded device [None]
  - Pain [None]
  - Anhedonia [None]
  - Emotional distress [None]
  - Device dislocation [None]
  - Anxiety [None]
  - Device difficult to use [None]
  - Abdominal pain [None]

NARRATIVE: CASE EVENT DATE: 201201
